FAERS Safety Report 12667207 (Version 1)
Quarter: 2016Q3

REPORT INFORMATION
  Report Type: Spontaneous
  Country: US (occurrence: None)
  Receive Date: 20160818
  Receipt Date: 20160818
  Transmission Date: 20161109
  Serious: Yes (Other)
  Sender: FDA-Public Use
  Company Number: None

PATIENT
  Age: 70 Year
  Sex: Male
  Weight: 95.26 kg

DRUGS (8)
  1. MULTIVITAMINS [Concomitant]
     Active Substance: VITAMINS
  2. 82MG ASPIRIN [Concomitant]
  3. KRILL OIL [Concomitant]
     Active Substance: DIETARY SUPPLEMENT
  4. PROBIOTICS [Concomitant]
     Active Substance: PROBIOTICS NOS
  5. GLUCOSAMINE CHONDROTIN [Concomitant]
     Active Substance: CHONDROITIN SULFATE (BOVINE)\GLUCOSAMINE SULFATE
  6. CREST PRO-HEALTH CLINICAL [Suspect]
     Active Substance: CETYLPYRIDINIUM CHLORIDE
     Indication: GINGIVAL DISORDER
     Dosage: AS NEEDED RINSE MOUTH
     Dates: start: 20150215, end: 20150228
  7. SIMVISTATIN [Concomitant]
     Active Substance: SIMVASTATIN
  8. COQ10 [Concomitant]
     Active Substance: UBIDECARENONE

REACTIONS (2)
  - Burning mouth syndrome [None]
  - Glossodynia [None]
